APPROVED DRUG PRODUCT: PROPYLTHIOURACIL
Active Ingredient: PROPYLTHIOURACIL
Strength: 50MG
Dosage Form/Route: TABLET;ORAL
Application: A080154 | Product #001 | TE Code: BD
Applicant: QUAGEN PHARMACEUTICALS LLC
Approved: Approved Prior to Jan 1, 1982 | RLD: No | RS: No | Type: RX